FAERS Safety Report 5138973-4 (Version None)
Quarter: 2006Q4

REPORT INFORMATION
  Report Type: 
  Country: None (occurrence: None)
  Receive Date: 20061030
  Receipt Date: 20060525
  Transmission Date: 20070319
  Serious: No
  Sender: FDA-Public Use
  Company Number: US-GLAXOSMITHKLINE-A0606940A

PATIENT
  Age: 79 Year
  Sex: Female

DRUGS (3)
  1. ADVAIR HFA [Suspect]
     Indication: CHRONIC OBSTRUCTIVE PULMONARY DISEASE
     Route: 055
     Dates: start: 20040525
  2. HRT PATCH [Concomitant]
  3. ANTIHYPERTENSIVE [Concomitant]

REACTIONS (1)
  - INCREASED TENDENCY TO BRUISE [None]
